FAERS Safety Report 7600479-8 (Version None)
Quarter: 2011Q3

REPORT INFORMATION
  Report Type: 
  Country: None (occurrence: None)
  Receive Date: 20110706
  Receipt Date: 20110706
  Transmission Date: 20111222
  Serious: Yes (Life-Threatening)
  Sender: FDA-Public Use
  Company Number: None

PATIENT
  Sex: Female
  Weight: 46.5391 kg

DRUGS (2)
  1. TAXOL [Suspect]
     Indication: HEAD AND NECK CANCER
     Dosage: IV 45MG Q WEEK
     Route: 042
     Dates: start: 20110615
  2. TAXOL [Suspect]
     Indication: HEAD AND NECK CANCER
     Dosage: IV 45MG Q WEEK
     Route: 042
     Dates: start: 20110629

REACTIONS (8)
  - INFUSION RELATED REACTION [None]
  - DYSPHAGIA [None]
  - NAUSEA [None]
  - OXYGEN SATURATION DECREASED [None]
  - THERAPEUTIC RESPONSE DECREASED [None]
  - FLUSHING [None]
  - CHEST PAIN [None]
  - HYPOTENSION [None]
